FAERS Safety Report 5127825-1 (Version None)
Quarter: 2006Q4

REPORT INFORMATION
  Report Type: 
  Country: None (occurrence: None)
  Receive Date: 20061016
  Receipt Date: 20061006
  Transmission Date: 20070319
  Serious: Yes (Death)
  Sender: FDA-Public Use
  Company Number: JP-ROCHE-466766

PATIENT
  Age: 56 Year
  Sex: Female

DRUGS (7)
  1. CELLCEPT [Suspect]
     Route: 048
  2. RITUXIMAB [Suspect]
     Route: 042
  3. METHYLPREDNISOLONE [Concomitant]
  4. HORMONE NOS [Concomitant]
     Dosage: REPORTED AS ADRENAL HORMONE PREPARATIONS.
  5. DINOPROST [Concomitant]
     Dosage: REPORTED AS PROSTAGLANDIN F2 ALPHA
  6. TACROLIMUS HYDRATE [Concomitant]
  7. CYCLOPHOSPHAMIDE [Concomitant]

REACTIONS (3)
  - BILIARY TRACT DISORDER [None]
  - INFECTION [None]
  - TRANSFUSION REACTION [None]
